FAERS Safety Report 11436165 (Version 1)
Quarter: 2015Q3

REPORT INFORMATION
  Report Type: Spontaneous
  Country: US (occurrence: US)
  Receive Date: 20150831
  Receipt Date: 20150831
  Transmission Date: 20151125
  Serious: Yes (Other)
  Sender: FDA-Public Use
  Company Number: US-CELGENE-USA-2015084194

PATIENT

DRUGS (2)
  1. ABRAXANE [Suspect]
     Active Substance: PACLITAXEL
     Indication: BREAST CANCER
     Route: 065
  2. BEVACIZUMAB [Suspect]
     Active Substance: BEVACIZUMAB
     Indication: BREAST CANCER
     Route: 065

REACTIONS (12)
  - Fatigue [Unknown]
  - Hyperglycaemia [Unknown]
  - General symptom [Recovered/Resolved]
  - Peripheral sensory neuropathy [Unknown]
  - Infection [Unknown]
  - Proteinuria [Unknown]
  - Pain [Recovered/Resolved]
  - White blood cell disorder [Unknown]
  - Haemoglobin abnormal [Unknown]
  - Pain [Unknown]
  - Neutrophil count abnormal [Unknown]
  - Diarrhoea [Unknown]
